FAERS Safety Report 17135917 (Version 1)
Quarter: 2019Q4

REPORT INFORMATION
  Report Type: Spontaneous
  Country: US (occurrence: US)
  Receive Date: 20191210
  Receipt Date: 20191210
  Transmission Date: 20200122
  Serious: No
  Sender: FDA-Public Use
  Company Number: US-OSMOTICA_PHARMACEUTICAL_US_LLC-POI0573201900466

PATIENT
  Age: 66 Year
  Sex: Female

DRUGS (1)
  1. OSMOLEX ER [Suspect]
     Active Substance: AMANTADINE
     Indication: DYSKINESIA
     Dates: start: 20191016

REACTIONS (4)
  - Joint swelling [Unknown]
  - Sleep apnoea syndrome [Unknown]
  - Chapped lips [Unknown]
  - Erythema [Unknown]

NARRATIVE: CASE EVENT DATE: 20191108
